FAERS Safety Report 8050219-6 (Version None)
Quarter: 2012Q1

REPORT INFORMATION
  Report Type: 
  Country: None (occurrence: None)
  Receive Date: 20120111
  Receipt Date: 20120106
  Transmission Date: 20120608
  Serious: Yes (Death)
  Sender: FDA-Public Use
  Company Number: 2006-144385-NL

PATIENT
  Age: 40 Year
  Sex: Female
  Weight: 52.2 kg

DRUGS (3)
  1. KEFLEX [Concomitant]
  2. MEDROL [Concomitant]
  3. NUVARING [Suspect]
     Indication: CONTRACEPTION
     Dosage: VAG
     Route: 067
     Dates: start: 20050614, end: 20050715

REACTIONS (9)
  - GRAND MAL CONVULSION [None]
  - PULMONARY EMBOLISM [None]
  - CARDIO-RESPIRATORY ARREST [None]
  - PUPILLARY REFLEX IMPAIRED [None]
  - BLOOD PRESSURE DECREASED [None]
  - DEEP VEIN THROMBOSIS [None]
  - UNRESPONSIVE TO STIMULI [None]
  - CYANOSIS [None]
  - PULSELESS ELECTRICAL ACTIVITY [None]
